FAERS Safety Report 10061503 (Version 1)
Quarter: 2014Q2

REPORT INFORMATION
  Report Type: Spontaneous
  Country: US (occurrence: US)
  Receive Date: 20140407
  Receipt Date: 20140407
  Transmission Date: 20141212
  Serious: Yes (Other)
  Sender: FDA-Public Use
  Company Number: US-JNJFOC-20140317557

PATIENT
  Sex: Female

DRUGS (2)
  1. DOXORUBICIN [Suspect]
     Indication: OVARIAN CANCER
     Dosage: DAY 1, ONCE EVERY 28 DAYS
     Route: 042
  2. VINTAFOLIDE [Suspect]
     Indication: OVARIAN CANCER
     Dosage: WEEKS 1 AND 3, ONCE EVERY 28 DAYS
     Route: 042

REACTIONS (8)
  - Anaemia [Unknown]
  - Neutropenia [Unknown]
  - Peripheral sensory neuropathy [Unknown]
  - Stomatitis [Unknown]
  - Palmar-plantar erythrodysaesthesia syndrome [Unknown]
  - Constipation [Unknown]
  - Nausea [Unknown]
  - Fatigue [Unknown]
